FAERS Safety Report 15711476 (Version 1)
Quarter: 2018Q4

REPORT INFORMATION
  Report Type: Spontaneous
  Country: US (occurrence: US)
  Receive Date: 20181211
  Receipt Date: 20181211
  Transmission Date: 20190205
  Serious: No
  Sender: FDA-Public Use
  Company Number: US-009507513-1812USA005595

PATIENT
  Sex: Female
  Weight: 90.7 kg

DRUGS (1)
  1. NUVARING [Suspect]
     Active Substance: ETHINYL ESTRADIOL\ETONOGESTREL
     Dosage: 1 DOSAGE FORM
     Route: 067
     Dates: start: 2016

REACTIONS (7)
  - Discomfort [Unknown]
  - Product quality issue [Unknown]
  - Inappropriate schedule of product administration [Unknown]
  - Abdominal pain upper [Recovered/Resolved]
  - Abnormal withdrawal bleeding [Unknown]
  - Intentional medical device removal by patient [Unknown]
  - Vaginal haemorrhage [Recovered/Resolved]

NARRATIVE: CASE EVENT DATE: 2018
